FAERS Safety Report 13587036 (Version 1)
Quarter: 2017Q2

REPORT INFORMATION
  Report Type: Spontaneous
  Country: US (occurrence: US)
  Receive Date: 20170526
  Receipt Date: 20170526
  Transmission Date: 20170830
  Serious: Yes (Hospitalization, Other)
  Sender: FDA-Public Use
  Company Number: US-ENDO PHARMACEUTICALS INC-2017-002988

PATIENT
  Age: 53 Year
  Sex: Female

DRUGS (2)
  1. INTERFERON BETA NOS [Concomitant]
     Active Substance: INTERFERON BETA
     Indication: MULTIPLE SCLEROSIS
     Dosage: 30 ?G, WEEKLY
     Route: 065
  2. OPANA ER [Suspect]
     Active Substance: OXYMORPHONE HYDROCHLORIDE
     Indication: PAIN
     Dosage: UNK MG, UNKNOWN
     Route: 042

REACTIONS (5)
  - Posterior reversible encephalopathy syndrome [Recovered/Resolved]
  - Thrombotic microangiopathy [Recovered/Resolved]
  - Drug use disorder [Unknown]
  - Intentional product use issue [Unknown]
  - Intentional product misuse [Unknown]
